FAERS Safety Report 8000965-5 (Version None)
Quarter: 2011Q4

REPORT INFORMATION
  Report Type: 
  Country: None (occurrence: None)
  Receive Date: 20111219
  Receipt Date: 20111206
  Transmission Date: 20120403
  Serious: Yes (Hospitalization)
  Sender: FDA-Public Use
  Company Number: 2011HGS-002859

PATIENT
  Age: 76 Year
  Sex: Female
  Weight: 74.3899 kg

DRUGS (14)
  1. BENADRYL (DIPHENYDRAMINE HYDROCHLORIDE) (DIPHENHYDRAMINE HYDROCHLORIDE [Concomitant]
  2. ACYCLOVIR (ACICLOVIR) (ACICLOVIR) [Concomitant]
  3. ALLEGRA (FEXOFENADINE HYDROCHLORIDE) (FEXOFENADINE HYDROCHLORIDE) [Concomitant]
  4. BENLYSTA [Suspect]
     Indication: SYSTEMIC LUPUS ERYTHEMATOSUS
     Dosage: 10 MG/KG, 1 IN 28 D, INTRAVENOUS
     Route: 042
     Dates: start: 20111109
  5. GLUCOPHAGE (METFORMIN) (METFORMIN) [Concomitant]
  6. GLUCOTROL [Concomitant]
  7. SINGULAIR (MONTELUKAST) (MONTELUKAST) [Concomitant]
  8. MALLOX (MAALOX) (MAGNESIUM HYDROXIDE, ALUMINIUM HYDROXIDE GEL) [Concomitant]
  9. NEXIUM [Concomitant]
  10. MEDROL (METHYLPHREDNISOLONE) (MEHTYLPREDNISOLONE) [Concomitant]
  11. XYLOCAINE [Concomitant]
  12. ANACIN (ANACIN) (ACETYLSICYLIC ACID, CAFFEINE) [Concomitant]
  13. LOSARTAN HCTZ (HYZAAR) (HYDROCHLOROTHIAZIDE, LOSARTAN POTASSIUM) [Concomitant]
  14. AMLODIPINE [Concomitant]

REACTIONS (9)
  - HAEMORRHAGE [None]
  - FAECES DISCOLOURED [None]
  - CONTUSION [None]
  - LOSS OF CONSCIOUSNESS [None]
  - ABDOMINAL PAIN [None]
  - CHEST PAIN [None]
  - FALL [None]
  - BREAST INJURY [None]
  - SKELETAL INJURY [None]
